FAERS Safety Report 8770052 (Version 2)
Quarter: 2012Q4

REPORT INFORMATION
  Report Type: Report from Study
  Country: JP (occurrence: JP)
  Receive Date: 20120905
  Receipt Date: 20120905
  Transmission Date: 20130627
  Serious: Yes (Hospitalization, Other)
  Sender: FDA-Public Use
  Company Number: JP-EISAI INC-E7389-02603-CLI-JP

PATIENT
  Age: 55 Year
  Sex: Female
  Weight: 68 kg

DRUGS (15)
  1. HALAVEN [Suspect]
     Indication: BREAST CANCER RECURRENT
     Route: 041
     Dates: start: 20111207, end: 20120516
  2. HALAVEN [Suspect]
     Indication: METASTASES TO LIVER
     Route: 041
     Dates: start: 20111116, end: 20111123
  3. HALAVEN [Suspect]
     Indication: METASTASES TO BONE
  4. ZOMETA [Concomitant]
     Indication: METASTASES TO BONE
     Route: 041
  5. MEVALOTIN [Concomitant]
     Route: 048
  6. HYPEN [Concomitant]
     Route: 048
  7. MUCOSTA [Concomitant]
     Indication: PROPHYLAXIS
     Route: 048
  8. NOVAMIN [Concomitant]
     Indication: PROPHYLAXIS
     Route: 048
  9. FENTOS [Concomitant]
  10. TRAVELMIN [Concomitant]
     Indication: PROPHYLAXIS
     Route: 048
  11. FASLODEX [Concomitant]
     Indication: BREAST CANCER RECURRENT
     Route: 048
     Dates: start: 20120502
  12. ALESION [Concomitant]
     Route: 048
  13. PRIMPERAN [Concomitant]
     Indication: PROPHYLAXIS
     Route: 048
  14. JANUVIA [Concomitant]
     Route: 048
  15. BIO-THREE [Concomitant]
     Indication: PROPHYLAXIS
     Route: 048

REACTIONS (3)
  - Hepatic function abnormal [Not Recovered/Not Resolved]
  - Thrombocytopenia [Recovering/Resolving]
  - Diarrhoea [Recovered/Resolved]
